FAERS Safety Report 24286435 (Version 1)
Quarter: 2024Q3

REPORT INFORMATION
  Report Type: Spontaneous
  Country: BR (occurrence: BR)
  Receive Date: 20240905
  Receipt Date: 20240905
  Transmission Date: 20241017
  Serious: Yes (Other)
  Sender: ROCHE
  Company Number: BR-ROCHE-10000067670

PATIENT
  Age: 62 Year
  Sex: Female

DRUGS (3)
  1. ATEZOLIZUMAB [Suspect]
     Active Substance: ATEZOLIZUMAB
     Indication: Lung adenocarcinoma
     Route: 065
     Dates: start: 20230704, end: 20230926
  2. CISPLATIN [Concomitant]
     Active Substance: CISPLATIN
  3. PEMETREXED DISODIUM [Concomitant]
     Active Substance: PEMETREXED DISODIUM

REACTIONS (2)
  - Immune-mediated adrenal insufficiency [Recovered/Resolved]
  - Cerebrovascular accident [Unknown]
